FAERS Safety Report 5501871-8 (Version None)
Quarter: 2007Q4

REPORT INFORMATION
  Report Type: 
  Country: None (occurrence: None)
  Receive Date: 20071030
  Receipt Date: 20071017
  Transmission Date: 20080405
  Serious: No
  Sender: FDA-Public Use
  Company Number: A0676987A

PATIENT
  Age: 76 Year
  Sex: Female

DRUGS (9)
  1. SEREVENT [Suspect]
     Indication: CHRONIC OBSTRUCTIVE PULMONARY DISEASE
     Dosage: 1PUFF PER DAY
     Route: 055
     Dates: start: 20030101
  2. DIOVAN [Concomitant]
  3. VERAPAMIL [Concomitant]
  4. HYDROCHLOROTHIAZIDE [Concomitant]
  5. SPIRIVA [Concomitant]
  6. XALATAN [Concomitant]
  7. PROVENTIL [Concomitant]
  8. BACTROBAN [Concomitant]
  9. TRIAMCINOLONE [Concomitant]

REACTIONS (3)
  - DRUG INEFFECTIVE [None]
  - INCREASED UPPER AIRWAY SECRETION [None]
  - THINKING ABNORMAL [None]
